FAERS Safety Report 5320334-6 (Version None)
Quarter: 2007Q1

REPORT INFORMATION
  Report Type: 
  Country: None (occurrence: None)
  Receive Date: 20070209
  Receipt Date: 20061129
  Transmission Date: 20070707
  Serious: Yes (Other)
  Sender: FDA-Public Use
  Company Number: T200601383

PATIENT
  Age: 40 Year
  Sex: Female
  Weight: 77.1 kg

DRUGS (1)
  1. OPTIMARK [Suspect]
     Indication: NUCLEAR MAGNETIC RESONANCE IMAGING BRAIN
     Dosage: 16 ML, SINGLE, INTRAVENOUS
     Route: 042
     Dates: start: 20061127, end: 20061127

REACTIONS (3)
  - DIZZINESS [None]
  - SYNCOPE [None]
  - VERTIGO [None]
